FAERS Safety Report 7940694-7 (Version None)
Quarter: 2011Q4

REPORT INFORMATION
  Report Type: 
  Country: None (occurrence: None)
  Receive Date: 20111128
  Receipt Date: 20111118
  Transmission Date: 20120403
  Serious: Yes (Other)
  Sender: FDA-Public Use
  Company Number: US-JNJFOC-20111108434

PATIENT
  Sex: Male
  Weight: 90.72 kg

DRUGS (3)
  1. DURAGESIC-100 [Suspect]
     Indication: PAIN
     Route: 062
  2. DURAGESIC-100 [Suspect]
     Route: 062
     Dates: start: 20110101
  3. FENTANYL-100 [Suspect]
     Indication: PAIN
     Route: 062
     Dates: end: 20110101

REACTIONS (5)
  - CONDITION AGGRAVATED [None]
  - POST HERPETIC NEURALGIA [None]
  - RASH [None]
  - APPLICATION SITE REACTION [None]
  - HERPES ZOSTER [None]
